FAERS Safety Report 6802005-X (Version None)
Quarter: 2010Q2

REPORT INFORMATION
  Report Type: 
  Country: None (occurrence: None)
  Receive Date: 20100629
  Receipt Date: 20100617
  Transmission Date: 20101027
  Serious: Yes (Other)
  Sender: FDA-Public Use
  Company Number: PHHY2010DE40523

PATIENT
  Sex: Male

DRUGS (1)
  1. CERTICAN [Suspect]
     Indication: LIVER TRANSPLANT
     Dosage: UNK
     Route: 048
     Dates: start: 20100310, end: 20100507

REACTIONS (6)
  - CHOLANGIOLITIS [None]
  - CHOLESTASIS [None]
  - COMPLICATIONS OF TRANSPLANTED LIVER [None]
  - HEPATIC NECROSIS [None]
  - LIVER TRANSPLANT REJECTION [None]
  - PORTAL VEIN PHLEBITIS [None]
